FAERS Safety Report 24306842 (Version 1)
Quarter: 2024Q3

REPORT INFORMATION
  Report Type: Spontaneous
  Country: US (occurrence: None)
  Receive Date: 20240910
  Receipt Date: 20240910
  Transmission Date: 20241016
  Serious: Yes (Hospitalization)
  Sender: Public
  Company Number: None

PATIENT
  Age: 74 Year
  Sex: Female

DRUGS (1)
  1. LENALIDOMIDE [Suspect]
     Active Substance: LENALIDOMIDE
     Indication: Iron deficiency anaemia
     Dosage: FREQUENCY : DAILY;?!DAILY FOR 21 DAYS THEN 7 DAYS OFF??

REACTIONS (4)
  - Neuropathy peripheral [None]
  - Intestinal obstruction [None]
  - Fatigue [None]
  - Pain [None]
